FAERS Safety Report 7391374-0 (Version None)
Quarter: 2011Q2

REPORT INFORMATION
  Report Type: 
  Country: None (occurrence: None)
  Receive Date: 20110404
  Receipt Date: 20110325
  Transmission Date: 20111010
  Serious: No
  Sender: FDA-Public Use
  Company Number: US-PFIZER INC-2011067239

PATIENT
  Age: 68 Year
  Sex: Female

DRUGS (1)
  1. ALDACTONE [Suspect]

REACTIONS (1)
  - MUSCLE SPASMS [None]
